FAERS Safety Report 6059977-3 (Version None)
Quarter: 2009Q1

REPORT INFORMATION
  Report Type: 
  Country: None (occurrence: None)
  Receive Date: 20090130
  Receipt Date: 20090121
  Transmission Date: 20090719
  Serious: Yes (Hospitalization)
  Sender: FDA-Public Use
  Company Number: CA-B.I. PHARMACEUTICALS,INC./RIDGEFIELD-2008-DE-02474GD

PATIENT
  Age: 3 Year
  Sex: Male

DRUGS (3)
  1. ATROVENT [Suspect]
     Indication: ASTHMA
     Dosage: 500MCG
     Route: 055
  2. PREDNISONE [Suspect]
     Indication: ASTHMA
     Dosage: 15MG
     Route: 048
  3. VENTOLIN [Suspect]
     Indication: ASTHMA
     Dosage: 2500MCG

REACTIONS (7)
  - ACUTE RESPIRATORY DISTRESS SYNDROME [None]
  - ANAPHYLACTIC REACTION [None]
  - DRUG INEFFECTIVE [None]
  - OXYGEN SATURATION DECREASED [None]
  - PRURITUS [None]
  - TACHYPNOEA [None]
  - URTICARIA [None]
